FAERS Safety Report 19860993 (Version 1)
Quarter: 2021Q3

REPORT INFORMATION
  Report Type: Spontaneous
  Country: FR (occurrence: FR)
  Receive Date: 20210920
  Receipt Date: 20210920
  Transmission Date: 20211014
  Serious: Yes (Hospitalization, Other)
  Sender: FDA-Public Use
  Company Number: FR-MYLANLABS-2021M1063117

PATIENT
  Age: 73 Year
  Sex: Male

DRUGS (2)
  1. PARACETAMOL [Suspect]
     Active Substance: ACETAMINOPHEN
     Indication: PRODUCT USED FOR UNKNOWN INDICATION
     Dosage: 6.75 GRAM, TOTAL
     Route: 048
     Dates: start: 20200807, end: 20200807
  2. TRAMADOL. [Suspect]
     Active Substance: TRAMADOL
     Indication: PRODUCT USED FOR UNKNOWN INDICATION
     Dosage: 9 GRAM, TOTAL
     Route: 048
     Dates: start: 20200807, end: 20200807

REACTIONS (3)
  - Toxicity to various agents [Recovered/Resolved]
  - Suicide attempt [Unknown]
  - Depressed level of consciousness [Recovered/Resolved]

NARRATIVE: CASE EVENT DATE: 20200807
